FAERS Safety Report 7906214-8 (Version None)
Quarter: 2011Q4

REPORT INFORMATION
  Report Type: 
  Country: None (occurrence: None)
  Receive Date: 20111110
  Receipt Date: 20111027
  Transmission Date: 20120403
  Serious: Yes (Hospitalization)
  Sender: FDA-Public Use
  Company Number: US-ASTELLAS-2011US007186

PATIENT
  Age: 63 Year
  Sex: Female

DRUGS (2)
  1. DETROL [Concomitant]
     Indication: URINARY INCONTINENCE
     Dosage: UNK
     Route: 048
  2. VESICARE [Suspect]
     Indication: PRODUCT USED FOR UNKNOWN INDICATION
     Dosage: 25 MG, UID/QD
     Route: 048

REACTIONS (4)
  - DRUG INEFFECTIVE [None]
  - URINARY INCONTINENCE [None]
  - NOCTURIA [None]
  - ARTHROPATHY [None]
